FAERS Safety Report 9305329 (Version 1)
Quarter: 2013Q1

REPORT INFORMATION
  Report Type: Spontaneous
  Country: US (occurrence: None)
  Receive Date: 20130108
  Receipt Date: 20130108
  Transmission Date: 20140127
  Serious: Yes (Other)
  Sender: FDA-Public Use
  Company Number: OTH-PAT-2012013

PATIENT
  Age: 8 Year
  Sex: Male

DRUGS (1)
  1. CYSTADANE (BETAINE ANHYDROUS) (ORAL POWDER) 180MG [Suspect]
     Indication: HOMOCYSTINURIA

REACTIONS (3)
  - Gastrointestinal disorder [None]
  - Abdominal discomfort [None]
  - Nausea [None]
